FAERS Safety Report 8927916 (Version 1)
Quarter: 2012Q4

REPORT INFORMATION
  Report Type: Spontaneous
  Country: US (occurrence: None)
  Receive Date: 20121126
  Receipt Date: 20121126
  Transmission Date: 20130627
  Serious: Yes (Hospitalization)
  Sender: FDA-Public Use
  Company Number: None

PATIENT
  Age: 75 Year
  Sex: Male
  Weight: 114.5 kg

DRUGS (2)
  1. ATENOLOL [Suspect]
     Indication: HYPERTENSION
     Dosage: 50 MG   EVERY DAY  PO
     Route: 048
     Dates: start: 20020826, end: 20121120
  2. FUROSEMIDE [Suspect]
     Indication: HYPERTENSION
     Dosage: 60 MG   EVERY DAY  PO
     Route: 048
     Dates: start: 20060309, end: 20121120

REACTIONS (2)
  - Hypotension [None]
  - Incorrect dose administered [None]
